FAERS Safety Report 5425726-2 (Version None)
Quarter: 2007Q3

REPORT INFORMATION
  Report Type: 
  Country: None (occurrence: None)
  Receive Date: 20070824
  Receipt Date: 20070820
  Transmission Date: 20080115
  Serious: Yes (Other)
  Sender: FDA-Public Use
  Company Number: DE-PFIZER INC-2007069467

PATIENT
  Age: 54 Year
  Sex: Male

DRUGS (3)
  1. ATORVASTATIN CALCIUM [Suspect]
     Indication: HYPERCHOLESTEROLAEMIA
     Dosage: DAILY DOSE:20MG
     Route: 048
  2. IVABRADINE [Concomitant]
  3. CANDESARTAN CILEXETIL [Concomitant]

REACTIONS (4)
  - ARTHRALGIA [None]
  - CHEST PAIN [None]
  - CORONARY ARTERY STENOSIS [None]
  - JOINT SWELLING [None]
